FAERS Safety Report 9893605 (Version 1)
Quarter: 2014Q1

REPORT INFORMATION
  Report Type: Spontaneous
  Country: US (occurrence: US)
  Receive Date: 20140213
  Receipt Date: 20140213
  Transmission Date: 20141002
  Serious: Yes (Other)
  Sender: FDA-Public Use
  Company Number: US-FRI-1000053996

PATIENT
  Age: 42 Year
  Sex: Female

DRUGS (3)
  1. VIIBRYD [Suspect]
     Indication: DEPRESSION
     Dosage: 20 MG
     Dates: start: 20131204
  2. SINGULAIR [Concomitant]
     Indication: SEASONAL ALLERGY
  3. BIRTH CONTROL NOS [Concomitant]

REACTIONS (1)
  - Stress cardiomyopathy [Unknown]
